FAERS Safety Report 6410204-4 (Version None)
Quarter: 2009Q4

REPORT INFORMATION
  Report Type: 
  Country: None (occurrence: None)
  Receive Date: 20091022
  Receipt Date: 20091008
  Transmission Date: 20100525
  Serious: Yes (Other)
  Sender: FDA-Public Use
  Company Number: PHHY2009CA43876

PATIENT
  Sex: Male

DRUGS (1)
  1. DIOVAN [Suspect]
     Dosage: 1 DF (160 MG) DAILY
     Route: 048

REACTIONS (4)
  - BLOOD GLUCOSE INCREASED [None]
  - CATARACT OPERATION [None]
  - DYSPNOEA [None]
  - EYE DISORDER [None]
